APPROVED DRUG PRODUCT: AMMONIA N 13
Active Ingredient: AMMONIA N-13
Strength: 48.75mCi-487.5mCi/13ML (3.75-37.5mCi/ML)
Dosage Form/Route: INJECTABLE;INTRAVENOUS
Application: A204352 | Product #001 | TE Code: AP
Applicant: BIOMEDICAL RESEARCH FOUNDATION NORTHWEST LOUISANA
Approved: May 1, 2015 | RLD: No | RS: No | Type: RX